FAERS Safety Report 6971364-X (Version None)
Quarter: 2010Q3

REPORT INFORMATION
  Report Type: 
  Country: None (occurrence: None)
  Receive Date: 20100908
  Receipt Date: 20100825
  Transmission Date: 20110219
  Serious: Yes (Hospitalization, Other)
  Sender: FDA-Public Use
  Company Number: US-ELI_LILLY_AND_COMPANY-US201007006865

PATIENT
  Sex: Female

DRUGS (14)
  1. FORTEO [Suspect]
     Indication: OSTEOPOROSIS
     Dosage: 20 UG, DAILY (1/D)
  2. INSULIN [Concomitant]
  3. METFORMIN HCL [Concomitant]
  4. ACTOS [Concomitant]
  5. CRESTOR [Concomitant]
  6. BENAZEPRIL HYDROCHLORIDE [Concomitant]
  7. CIPRO [Concomitant]
  8. FLUCONAZOLE [Concomitant]
  9. VICODIN [Concomitant]
  10. PERCOCET [Concomitant]
  11. MORPHINE SULFATE [Concomitant]
  12. LYRICA [Concomitant]
  13. PRILOSEC [Concomitant]
  14. CYMBALTA [Concomitant]

REACTIONS (11)
  - ABSCESS [None]
  - ASTHENIA [None]
  - COMA [None]
  - FUNGAL INFECTION [None]
  - GASTRITIS EROSIVE [None]
  - HAEMORRHAGE [None]
  - HAND FRACTURE [None]
  - INFECTION [None]
  - INJURY [None]
  - PANCREATIC MASS [None]
  - WEIGHT DECREASED [None]
